FAERS Safety Report 16747371 (Version 2)
Quarter: 2020Q4

REPORT INFORMATION
  Report Type: Spontaneous
  Country: CH (occurrence: CH)
  Receive Date: 20190827
  Receipt Date: 20201203
  Transmission Date: 20210113
  Serious: Yes (Hospitalization)
  Sender: FDA-Public Use
  Company Number: CH-AMGEN-CHESP2019134315

PATIENT
  Age: 69 Year
  Sex: Male

DRUGS (25)
  1. TRAJENTA [Concomitant]
     Active Substance: LINAGLIPTIN
  2. REQUIP [Concomitant]
     Active Substance: ROPINIROLE HYDROCHLORIDE
     Dosage: UNK, QD
  3. GABAPENTIN. [Suspect]
     Active Substance: GABAPENTIN
     Indication: PRODUCT USED FOR UNKNOWN INDICATION
     Dosage: 300 MILLIGRAM, QOD
     Route: 048
  4. REQUIP [Concomitant]
     Active Substance: ROPINIROLE HYDROCHLORIDE
  5. CLOPIDOGREL [Concomitant]
     Active Substance: CLOPIDOGREL BISULFATE
     Dosage: 75 MILLIGRAM, QD
     Route: 048
  6. TRAJENTA [Concomitant]
     Active Substance: LINAGLIPTIN
     Dosage: 5 MILLIGRAM, UNK
  7. ARANESP [Suspect]
     Active Substance: DARBEPOETIN ALFA
     Indication: PRODUCT USED FOR UNKNOWN INDICATION
     Dosage: 60 MICROGRAM, QMO
     Route: 058
  8. CIALIS [Suspect]
     Active Substance: TADALAFIL
     Indication: PRODUCT USED FOR UNKNOWN INDICATION
     Dosage: 10 MILLIGRAM
     Route: 048
     Dates: start: 20190620, end: 201907
  9. ZOLDORM [Concomitant]
     Active Substance: ZOLPIDEM TARTRATE
     Dosage: 10 MILLIGRAM, QD
  10. LAXOBERON [Concomitant]
     Active Substance: SODIUM PICOSULFATE
     Dosage: UNK, AS NECESSARY
  11. ANXIOLIT [Concomitant]
     Active Substance: OXAZEPAM
  12. GABAPENTIN. [Suspect]
     Active Substance: GABAPENTIN
     Dosage: 300 MILLIGRAM, Q3DAYS
     Route: 048
     Dates: start: 20190111, end: 20190807
  13. TOREM [TORASEMIDE SODIUM] [Concomitant]
     Indication: ACUTE KIDNEY INJURY
     Dosage: 50 MILLIGRAM, QD
     Dates: start: 201801, end: 2018
  14. TOREM [TORASEMIDE SODIUM] [Concomitant]
     Dosage: 30 MILLIGRAM, QD
     Dates: start: 201803, end: 201907
  15. LAXOBERON [Concomitant]
     Active Substance: SODIUM PICOSULFATE
  16. NEXIUM [Suspect]
     Active Substance: ESOMEPRAZOLE MAGNESIUM
     Indication: PRODUCT USED FOR UNKNOWN INDICATION
     Dosage: 40 MILLIGRAM, QD
     Route: 048
  17. TOREM [TORASEMIDE SODIUM] [Concomitant]
     Dosage: 50 MILLIGRAM, AS NECESSARY
     Dates: start: 2018, end: 201803
  18. TOREM [TORASEMIDE SODIUM] [Concomitant]
     Dosage: 50 MILLIGRAM, QD
     Dates: start: 20190718
  19. ANXIOLIT [Concomitant]
     Active Substance: OXAZEPAM
     Dosage: UNK, AS NECESSARY
  20. ATORVASTATIN [Concomitant]
     Active Substance: ATORVASTATIN
     Dosage: 40 MILLIGRAM, QD
     Route: 048
  21. PRADIF T [Concomitant]
     Active Substance: TAMSULOSIN HYDROCHLORIDE
     Dosage: 400 MICROGRAM, QD
  22. DAFALGAN [Concomitant]
     Active Substance: ACETAMINOPHEN
     Dosage: 1000 MILLIGRAM, Q3DAYS
  23. TIZANIDINE. [Concomitant]
     Active Substance: TIZANIDINE
     Dosage: UNK
     Dates: start: 201906, end: 201906
  24. PURSANA [Concomitant]
     Active Substance: FIG FRUIT OIL\SORBITOL
     Dosage: UNK, AS NECESSARY
  25. PURSANA [Concomitant]
     Active Substance: FIG FRUIT OIL\SORBITOL

REACTIONS (3)
  - Fluid retention [Recovered/Resolved]
  - Dyspnoea [Recovered/Resolved]
  - Oedema peripheral [Recovered/Resolved]

NARRATIVE: CASE EVENT DATE: 201907
